FAERS Safety Report 16305877 (Version 2)
Quarter: 2019Q3

REPORT INFORMATION
  Report Type: Spontaneous
  Country: US (occurrence: US)
  Receive Date: 20190513
  Receipt Date: 20190712
  Transmission Date: 20191004
  Serious: Yes (Hospitalization)
  Sender: FDA-Public Use
  Company Number: US-NOVOPROD-661262

PATIENT
  Age: 50 Year
  Sex: Female
  Weight: 114.76 kg

DRUGS (38)
  1. SINGULAIR [Concomitant]
     Active Substance: MONTELUKAST SODIUM
     Indication: PRODUCT USED FOR UNKNOWN INDICATION
     Dosage: 10 MG, QD
     Route: 048
  2. MAGNESIUM OXIDE. [Concomitant]
     Active Substance: MAGNESIUM OXIDE
     Indication: PRODUCT USED FOR UNKNOWN INDICATION
     Dosage: 1000 MG, QD (TWO 500 MG TABLETS QD)
     Route: 048
  3. FOLIC ACID. [Concomitant]
     Active Substance: FOLIC ACID
     Indication: PRODUCT USED FOR UNKNOWN INDICATION
     Dosage: 0.8 MG, QD
     Route: 048
  4. JARDIANCE [Suspect]
     Active Substance: EMPAGLIFLOZIN
     Indication: TYPE 2 DIABETES MELLITUS
     Dosage: 25 MG, QD
     Route: 048
  5. PREDNISONE. [Concomitant]
     Active Substance: PREDNISONE
     Indication: PRODUCT USED FOR UNKNOWN INDICATION
     Dosage: 40 MG, QD
     Route: 048
  6. VITAMIN A [RETINOL] [Concomitant]
     Active Substance: RETINOL
     Indication: PRODUCT USED FOR UNKNOWN INDICATION
     Dosage: 10000 UNITS (3 CAPSULES DAILY)
     Route: 048
  7. NYSTATIN. [Concomitant]
     Active Substance: NYSTATIN
     Indication: PRODUCT USED FOR UNKNOWN INDICATION
     Dosage: BID (PRN)
     Route: 061
  8. NORCO [Concomitant]
     Active Substance: ACETAMINOPHEN\HYDROCODONE BITARTRATE
     Indication: PRODUCT USED FOR UNKNOWN INDICATION
     Dosage: 7.50 MG, TID (PRN)
     Route: 048
  9. VITAMIN D3 [Concomitant]
     Active Substance: CHOLECALCIFEROL
     Indication: PRODUCT USED FOR UNKNOWN INDICATION
     Dosage: 10000 IU, QD
     Route: 048
  10. FIORICET [Concomitant]
     Active Substance: ACETAMINOPHEN\BUTALBITAL\CAFFEINE
     Indication: PRODUCT USED FOR UNKNOWN INDICATION
     Dosage: BID (PRN)
     Route: 048
  11. WELLBUTRIN [Concomitant]
     Active Substance: BUPROPION HYDROCHLORIDE
     Indication: PRODUCT USED FOR UNKNOWN INDICATION
     Dosage: 300 MG, QD
     Route: 048
  12. RANEXA [Concomitant]
     Active Substance: RANOLAZINE
     Indication: PRODUCT USED FOR UNKNOWN INDICATION
     Dosage: 500 MG, BID
     Route: 048
  13. NAPROXEN. [Concomitant]
     Active Substance: NAPROXEN
     Indication: PRODUCT USED FOR UNKNOWN INDICATION
     Dosage: 500 MG, BID
     Route: 048
  14. LASIX [Concomitant]
     Active Substance: FUROSEMIDE
     Indication: PRODUCT USED FOR UNKNOWN INDICATION
     Dosage: 40 MG, BID
     Route: 048
  15. XOPENEX [Concomitant]
     Active Substance: LEVALBUTEROL HYDROCHLORIDE
     Indication: PRODUCT USED FOR UNKNOWN INDICATION
     Dosage: 0.63 MG, QD
     Route: 055
  16. GABAPENTIN. [Concomitant]
     Active Substance: GABAPENTIN
     Indication: PRODUCT USED FOR UNKNOWN INDICATION
     Dosage: 800 MG, TID
     Route: 048
  17. MECLIZINE [Concomitant]
     Active Substance: MECLIZINE HYDROCHLORIDE
     Indication: PRODUCT USED FOR UNKNOWN INDICATION
     Dosage: 12.5 MG, QD
     Route: 048
  18. XOLAIR [Concomitant]
     Active Substance: OMALIZUMAB
     Indication: PRODUCT USED FOR UNKNOWN INDICATION
     Dosage: 300 MG (Q2WEEKS)
     Route: 058
  19. TRAMADOL. [Concomitant]
     Active Substance: TRAMADOL
     Indication: PRODUCT USED FOR UNKNOWN INDICATION
     Dosage: 50 MG, TID (PRN)
     Route: 048
  20. CINNAMON [CINNAMOMUM CASSIA] [Concomitant]
     Indication: PRODUCT USED FOR UNKNOWN INDICATION
     Dosage: 500 MG, BID
     Route: 048
  21. TRESIBA [Suspect]
     Active Substance: INSULIN DEGLUDEC
     Indication: TYPE 2 DIABETES MELLITUS
     Dosage: 160 IU
     Route: 058
     Dates: start: 20161207
  22. NASONEX [Concomitant]
     Active Substance: MOMETASONE FUROATE
     Indication: PRODUCT USED FOR UNKNOWN INDICATION
     Dosage: 50 ?G, QD
     Route: 055
  23. NITROGLYCERIN. [Concomitant]
     Active Substance: NITROGLYCERIN
     Indication: PRODUCT USED FOR UNKNOWN INDICATION
     Dosage: 0.40 MG (Q 5 MIN PRN)
     Route: 060
  24. IMITREX DF [Concomitant]
     Active Substance: SUMATRIPTAN SUCCINATE
     Indication: PRODUCT USED FOR UNKNOWN INDICATION
     Dosage: 6 MG, PRN
     Route: 058
  25. EPIPEN [Concomitant]
     Active Substance: EPINEPHRINE
     Indication: PRODUCT USED FOR UNKNOWN INDICATION
     Dosage: ONCE
     Route: 030
  26. ZYRTEC [Concomitant]
     Active Substance: CETIRIZINE HYDROCHLORIDE
     Indication: PRODUCT USED FOR UNKNOWN INDICATION
     Dosage: 20 MG, QD
     Route: 048
  27. RIZATRIPTAN. [Concomitant]
     Active Substance: RIZATRIPTAN
     Indication: PRODUCT USED FOR UNKNOWN INDICATION
     Dosage: 10 MG, QD
     Route: 048
  28. VITAMIN B [Concomitant]
     Active Substance: VITAMIN B
     Indication: PRODUCT USED FOR UNKNOWN INDICATION
     Dosage: 400 IU, QD
     Route: 048
  29. RIFAXIMIN. [Concomitant]
     Active Substance: RIFAXIMIN
     Indication: PRODUCT USED FOR UNKNOWN INDICATION
     Dosage: 550 MG, TID
     Route: 048
  30. THEOPHYLLINE [Concomitant]
     Active Substance: THEOPHYLLINE ANHYDROUS
     Indication: PRODUCT USED FOR UNKNOWN INDICATION
     Dosage: 300 MG, BID (Q12H)
     Route: 048
  31. VITAMIN B12 [Concomitant]
     Active Substance: CYANOCOBALAMIN
     Indication: PRODUCT USED FOR UNKNOWN INDICATION
     Dosage: 1000 ?G (Q 3 MONTHS)
     Route: 030
  32. VOLTAREN [DICLOFENAC] [Concomitant]
     Active Substance: DICLOFENAC SODIUM
     Indication: PRODUCT USED FOR UNKNOWN INDICATION
     Dosage: AT BEDTIME
     Route: 061
  33. TURMERIC [CURCUMA LONGA] [Concomitant]
     Indication: PRODUCT USED FOR UNKNOWN INDICATION
     Dosage: 750 MG, QD
     Route: 048
  34. NEXIUM I.V. [Concomitant]
     Active Substance: ESOMEPRAZOLE SODIUM
     Indication: PRODUCT USED FOR UNKNOWN INDICATION
     Dosage: 40 MG, QD
     Route: 048
  35. ATROVENT [Concomitant]
     Active Substance: IPRATROPIUM BROMIDE
     Indication: PRODUCT USED FOR UNKNOWN INDICATION
     Dosage: 500 ?G, QID
     Route: 048
  36. LOSARTAN. [Concomitant]
     Active Substance: LOSARTAN
     Indication: PRODUCT USED FOR UNKNOWN INDICATION
     Dosage: 125 MG, QD (100 MG AND 25 MG QD)
     Route: 048
  37. ALLEGRA [Concomitant]
     Active Substance: FEXOFENADINE HYDROCHLORIDE
     Indication: PRODUCT USED FOR UNKNOWN INDICATION
     Dosage: 180 MG, QD
     Route: 048
  38. LACTOBACILLUS ACIDOPHILUS [Concomitant]
     Active Substance: LACTOBACILLUS ACIDOPHILUS
     Indication: PRODUCT USED FOR UNKNOWN INDICATION
     Dosage: BID
     Route: 048

REACTIONS (7)
  - Diabetic foot [Recovering/Resolving]
  - Acute kidney injury [Unknown]
  - Blood glucose increased [Unknown]
  - Osteomyelitis [Recovering/Resolving]
  - Cellulitis [Recovering/Resolving]
  - Glycosylated haemoglobin increased [Unknown]
  - Arthropod bite [Recovering/Resolving]

NARRATIVE: CASE EVENT DATE: 20180802
